FAERS Safety Report 12933585 (Version 1)
Quarter: 2016Q4

REPORT INFORMATION
  Report Type: Spontaneous
  Country: US (occurrence: US)
  Receive Date: 20161111
  Receipt Date: 20161111
  Transmission Date: 20170207
  Serious: No
  Sender: FDA-Public Use
  Company Number: US-ACTELION-A-NJ2016-145323

PATIENT
  Age: 63 Year
  Sex: Female
  Weight: 70.75 kg

DRUGS (2)
  1. TYVASO [Suspect]
     Active Substance: TREPROSTINIL
     Indication: PULMONARY ARTERIAL HYPERTENSION
     Dosage: 30 MCG, QID
     Route: 055
     Dates: start: 20150806
  2. UPTRAVI [Suspect]
     Active Substance: SELEXIPAG
     Indication: PULMONARY ARTERIAL HYPERTENSION
     Dosage: 400 MCG, BID
     Route: 048
     Dates: end: 201610

REACTIONS (6)
  - Neck pain [Recovered/Resolved]
  - Headache [Unknown]
  - Blood pressure decreased [Unknown]
  - Back pain [Unknown]
  - Musculoskeletal stiffness [Recovered/Resolved]
  - Dizziness [Unknown]

NARRATIVE: CASE EVENT DATE: 201608
